FAERS Safety Report 24156055 (Version 1)
Quarter: 2024Q3

REPORT INFORMATION
  Report Type: Spontaneous
  Country: US (occurrence: US)
  Receive Date: 20240731
  Receipt Date: 20240731
  Transmission Date: 20241017
  Serious: Yes (Hospitalization)
  Sender: DOLGENCORP
  Company Number: US-Dolgencorp-2159787

PATIENT
  Sex: Female

DRUGS (1)
  1. EZ NITE SLEEP [Suspect]
     Active Substance: DIPHENHYDRAMINE HYDROCHLORIDE
     Indication: Sleep disorder
     Route: 048
     Dates: start: 20240714, end: 20240716

REACTIONS (3)
  - Oropharyngeal pain [Unknown]
  - Dysphagia [Unknown]
  - Lip swelling [Unknown]
